FAERS Safety Report 8173063-8 (Version None)
Quarter: 2012Q1

REPORT INFORMATION
  Report Type: 
  Country: None (occurrence: None)
  Receive Date: 20120223
  Receipt Date: 20120214
  Transmission Date: 20120608
  Serious: Yes (Other)
  Sender: FDA-Public Use
  Company Number: AUR-APL-2012-01028

PATIENT
  Sex: Female

DRUGS (1)
  1. DIVALPROEX SODIUM [Suspect]
     Indication: CONVULSION

REACTIONS (4)
  - NONKETOTIC HYPERGLYCINAEMIA [None]
  - CONDITION AGGRAVATED [None]
  - CONVULSION [None]
  - METABOLIC DISORDER [None]
